FAERS Safety Report 8391760-6 (Version None)
Quarter: 2012Q2

REPORT INFORMATION
  Report Type: 
  Country: None (occurrence: None)
  Receive Date: 20120529
  Receipt Date: 20120528
  Transmission Date: 20120825
  Serious: Yes (Other)
  Sender: FDA-Public Use
  Company Number: DE-ROCHE-1028771

PATIENT
  Sex: Male

DRUGS (2)
  1. AVASTIN [Suspect]
     Indication: RENAL CELL CARCINOMA
  2. INTERFERON [Concomitant]
     Indication: RENAL CELL CARCINOMA

REACTIONS (1)
  - NEOPLASM MALIGNANT [None]
